FAERS Safety Report 8766735 (Version 2)
Quarter: 2012Q4

REPORT INFORMATION
  Report Type: 
  Country: US (occurrence: US)
  Receive Date: 20120904
  Receipt Date: 20120926
  Transmission Date: 20130627
  Serious: Yes (Death, Other)
  Sender: FDA-Public Use
  Company Number: US-PURDUE-USA-2012-0092172

PATIENT
  Age: 50 Year
  Sex: Male
  Weight: 61.68 kg

DRUGS (2)
  1. ZOLPIDEM TARTRATE [Suspect]
     Indication: INITIAL INSOMNIA
     Route: 060
  2. VICODIN [Concomitant]
     Indication: PRODUCT USED FOR UNKNOWN INDICATION

REACTIONS (3)
  - Completed suicide [Fatal]
  - Stab wound [Fatal]
  - Physical assault [Unknown]
